FAERS Safety Report 24540053 (Version 1)
Quarter: 2024Q4

REPORT INFORMATION
  Report Type: Spontaneous
  Country: CN (occurrence: CN)
  Receive Date: 20241023
  Receipt Date: 20241023
  Transmission Date: 20250115
  Serious: Yes (Hospitalization)
  Sender: JOHNSON AND JOHNSON
  Company Number: CN-JNJFOC-20241052681

PATIENT
  Age: 85 Year
  Sex: Male
  Weight: 70 kg

DRUGS (5)
  1. DARZALEX [Suspect]
     Active Substance: DARATUMUMAB
     Indication: Plasma cell myeloma
     Route: 041
     Dates: start: 20241008, end: 20241009
  2. SODIUM CHLORIDE [Suspect]
     Active Substance: SODIUM CHLORIDE
     Indication: Plasma cell myeloma
     Route: 041
     Dates: start: 20241008, end: 20241009
  3. POMALIDOMIDE [Suspect]
     Active Substance: POMALIDOMIDE
     Indication: Plasma cell myeloma
     Route: 048
     Dates: start: 20241008, end: 20241009
  4. TROPISETRON HYDROCHLORIDE [Concomitant]
     Active Substance: TROPISETRON HYDROCHLORIDE
     Indication: Antiemetic supportive care
     Dosage: IVGTT QD
     Route: 042
  5. ADENOSINE CYCLIC PHOSPHATE MEGLUMINE [Concomitant]
     Active Substance: ADENOSINE CYCLIC PHOSPHATE MEGLUMINE
     Indication: Myocardial injury
     Dosage: IVGTT QD
     Route: 042

REACTIONS (3)
  - Upper gastrointestinal haemorrhage [Not Recovered/Not Resolved]
  - Dysphagia [Not Recovered/Not Resolved]
  - Infusion related reaction [Not Recovered/Not Resolved]

NARRATIVE: CASE EVENT DATE: 20241008
